FAERS Safety Report 8290353-9 (Version None)
Quarter: 2012Q2

REPORT INFORMATION
  Report Type: 
  Country: None (occurrence: None)
  Receive Date: 20120417
  Receipt Date: 20120404
  Transmission Date: 20120825
  Serious: Yes (Other)
  Sender: FDA-Public Use
  Company Number: ES-ELI_LILLY_AND_COMPANY-ES201204002328

PATIENT
  Sex: Male
  Weight: 34 kg

DRUGS (3)
  1. STRATTERA [Suspect]
     Dosage: UNK, UNKNOWN
     Route: 048
  2. STRATTERA [Suspect]
     Dosage: 40 MG, QD
     Route: 048
     Dates: start: 20111101
  3. STRATTERA [Suspect]
     Indication: ATTENTION DEFICIT/HYPERACTIVITY DISORDER
     Dosage: 10 MG, QD
     Route: 048
     Dates: start: 20110110

REACTIONS (4)
  - ABDOMINAL PAIN UPPER [None]
  - FAILURE TO THRIVE [None]
  - WEIGHT DECREASED [None]
  - APPENDICITIS [None]
